FAERS Safety Report 19360297 (Version 1)
Quarter: 2021Q2

REPORT INFORMATION
  Report Type: Spontaneous
  Country: ES (occurrence: ES)
  Receive Date: 20210601
  Receipt Date: 20210601
  Transmission Date: 20210717
  Serious: Yes (Other)
  Sender: FDA-Public Use
  Company Number: ES-TEVA-2021-ES-1916582

PATIENT
  Age: 83 Year
  Sex: Female

DRUGS (10)
  1. SIMVASTATINA 10 MG COMPRIMIDO [Concomitant]
  2. METFORMINA 850 MG COMPRIMIDO [Concomitant]
  3. VIDESIL 25.000 UI SOLUCION ORAL [Concomitant]
  4. NAPROXENO 500 MG 40 COMPRIMIDOS (NAPROXEN) [Suspect]
     Active Substance: NAPROXEN
     Indication: ROTATOR CUFF SYNDROME
     Dosage: 1/12, 500MG
     Route: 048
     Dates: start: 20210506, end: 20210506
  5. RELVAR ELLIPTA 184 MCG/22 MCG POLVO PARA INHALACION (UNIDODIS) [Concomitant]
  6. CORDIPLAST 5 MG/24 H PARCHES TRANSDERMICOS [Concomitant]
  7. DOLOCATIL [Concomitant]
     Active Substance: ACETAMINOPHEN
  8. TORASEMIDA 10 MG COMPRIMIDO [Concomitant]
  9. SEROXAT 20 MG COMPRIMIDOS RECUBIERTOS CON PELICULA, 56 COMPRIMIDOS [Concomitant]
     Active Substance: PAROXETINE HYDROCHLORIDE
  10. NEXIUM MUPS 20 MG COMPRIMIDOS GASTRORRESISTENTES , 28 COMPRIMIDOS [Concomitant]

REACTIONS (2)
  - Tongue oedema [Unknown]
  - Erythema [Unknown]

NARRATIVE: CASE EVENT DATE: 20210506
